FAERS Safety Report 8854746 (Version 1)
Quarter: 2012Q4

REPORT INFORMATION
  Report Type: 
  Country: US (occurrence: US)
  Receive Date: 20121023
  Receipt Date: 20121023
  Transmission Date: 20130627
  Serious: No
  Sender: FDA-Public Use
  Company Number: US-009507513-1210USA008998

PATIENT

DRUGS (2)
  1. SINGULAIR [Suspect]
     Route: 048
  2. MONTELUKAST SODIUM [Suspect]
     Dosage: UNK
     Route: 048
     Dates: start: 201208

REACTIONS (4)
  - Asthma [Unknown]
  - Adverse event [Unknown]
  - Product substitution issue [Unknown]
  - Hypersensitivity [Unknown]
